FAERS Safety Report 14382847 (Version 3)
Quarter: 2018Q4

REPORT INFORMATION
  Report Type: Report from Study
  Country: LB (occurrence: LB)
  Receive Date: 20180113
  Receipt Date: 20181217
  Transmission Date: 20190204
  Serious: Yes (Hospitalization, Other)
  Sender: FDA-Public Use
  Company Number: US-ASTRAZENECA-2018SE03859

PATIENT
  Age: 136 Day
  Sex: Female

DRUGS (3)
  1. SYNAGIS [Suspect]
     Active Substance: PALIVIZUMAB
     Indication: CARDIOMYOPATHY
     Dosage: 75.0MG UNKNOWN
     Route: 030
     Dates: start: 20171002, end: 20171002
  2. SYNAGIS [Suspect]
     Active Substance: PALIVIZUMAB
     Indication: CARDIOMYOPATHY
     Dosage: 75.0MG UNKNOWN
     Route: 030
     Dates: start: 20171111, end: 20171111
  3. SYNAGIS [Suspect]
     Active Substance: PALIVIZUMAB
     Indication: CARDIOMYOPATHY
     Dosage: 100.0MG UNKNOWN
     Route: 030
     Dates: start: 20171211, end: 20171211

REACTIONS (3)
  - Cough [Recovered/Resolved]
  - Apnoea [Recovered/Resolved]
  - Dyspnoea [Unknown]

NARRATIVE: CASE EVENT DATE: 20171002
